FAERS Safety Report 6237262-4 (Version None)
Quarter: 2009Q2

REPORT INFORMATION
  Report Type: 
  Country: None (occurrence: None)
  Receive Date: 20090619
  Receipt Date: 20090613
  Transmission Date: 20091009
  Serious: Yes (Other)
  Sender: FDA-Public Use
  Company Number: US-RB-017015-09

PATIENT
  Sex: Female

DRUGS (8)
  1. SUBOXONE [Suspect]
     Indication: DRUG DEPENDENCE
     Route: 060
     Dates: start: 20090501, end: 20090611
  2. SUBOXONE [Suspect]
     Dosage: PATIENT GIVEN 8 MG IN THE EMERGENCY ROOM AND A PRESCRIPTION FOR 8 MG
     Route: 060
     Dates: start: 20090612
  3. EFFEXOR [Concomitant]
     Indication: DEPRESSION
     Dosage: DOSING INFORMATION UNKNOWN
     Dates: start: 20080101
  4. KLONOPIN [Concomitant]
     Indication: PANIC ATTACK
     Dosage: DOSING INFORMATION UNKNOWN
  5. KLONOPIN [Concomitant]
     Indication: ANXIETY
     Dosage: DOSING INFORMATION UNKNOWN
  6. BENADRYL [Concomitant]
     Indication: SEASONAL ALLERGY
     Dosage: DOSING INFORMATION UNKNOWN
  7. NEXIUM [Concomitant]
     Indication: GASTROOESOPHAGEAL REFLUX DISEASE
     Dosage: DOSING INFORMATION UNKNOWN
     Dates: start: 20090101
  8. TRAZODONE HCL [Concomitant]
     Indication: INSOMNIA
     Dosage: DOSING INFORMATION UNKNOWN
     Dates: start: 20080101

REACTIONS (3)
  - DRUG WITHDRAWAL SYNDROME [None]
  - FRUSTRATION [None]
  - SUICIDAL IDEATION [None]
